FAERS Safety Report 23398654 (Version 2)
Quarter: 2024Q1

REPORT INFORMATION
  Report Type: Spontaneous
  Country: US (occurrence: US)
  Receive Date: 20240112
  Receipt Date: 20240227
  Transmission Date: 20240410
  Serious: Yes (Hospitalization)
  Sender: FDA-Public Use
  Company Number: US-BIOGEN-2024BI01244450

PATIENT
  Age: 47 Year
  Sex: Female

DRUGS (1)
  1. VUMERITY [Suspect]
     Active Substance: DIROXIMEL FUMARATE
     Indication: Multiple sclerosis
     Route: 050
     Dates: start: 20201209

REACTIONS (7)
  - Sepsis [Recovered/Resolved]
  - Pneumothorax [Recovered/Resolved]
  - Intra-abdominal haematoma [Recovered/Resolved]
  - Kidney hypermobility [Recovered/Resolved]
  - Haematoma [Recovered/Resolved]
  - Brain operation [Recovered/Resolved]
  - Vascular procedure complication [Unknown]

NARRATIVE: CASE EVENT DATE: 20210512
